FAERS Safety Report 9163909 (Version 3)
Quarter: 2013Q2

REPORT INFORMATION
  Report Type: Spontaneous
  Country: DE (occurrence: DE)
  Receive Date: 20130314
  Receipt Date: 20130417
  Transmission Date: 20140414
  Serious: Yes (Hospitalization)
  Sender: FDA-Public Use
  Company Number: DE-BAXTER-2013BAX003069

PATIENT
  Age: 14 Year
  Sex: Male
  Weight: 104 kg

DRUGS (1)
  1. KIOVIG (10 G/100 ML) [Suspect]
     Indication: IMMUNODEFICIENCY COMMON VARIABLE
     Route: 042
     Dates: start: 20130116, end: 20130116

REACTIONS (6)
  - Chest pain [Recovered/Resolved]
  - Tachycardia [Recovered/Resolved]
  - Peripheral vascular disorder [Recovered/Resolved]
  - Hypertonia [Recovered/Resolved]
  - Myalgia [Recovered/Resolved]
  - Pallor [Recovered/Resolved]
